FAERS Safety Report 6520285-5 (Version None)
Quarter: 2009Q4

REPORT INFORMATION
  Report Type: 
  Country: None (occurrence: None)
  Receive Date: 20091229
  Receipt Date: 20091218
  Transmission Date: 20100525
  Serious: Yes (Other)
  Sender: FDA-Public Use
  Company Number: PHHY2009GB57802

PATIENT
  Sex: Male

DRUGS (2)
  1. NEORAL [Suspect]
     Indication: BONE MARROW TRANSPLANT
     Dosage: 325 MG, BID
  2. NEORAL [Suspect]
     Dosage: 100 MG, BID

REACTIONS (1)
  - VISION BLURRED [None]
